FAERS Safety Report 4651552-8 (Version None)
Quarter: 2005Q2

REPORT INFORMATION
  Report Type: 
  Country: None (occurrence: None)
  Receive Date: 20050404
  Receipt Date: 20041110
  Transmission Date: 20051028
  Serious: No
  Sender: FDA-Public Use
  Company Number: USA041183748

PATIENT
  Age: 76 Year
  Sex: Female

DRUGS (5)
  1. CYMBALTA [Suspect]
     Indication: DEPRESSION
     Dosage: 60 MG
     Dates: start: 20041001, end: 20041110
  2. SYNTHROID [Concomitant]
  3. FOLTX [Concomitant]
  4. FOSAMAX [Concomitant]
  5. PROGESTERONE W/ESTROGENS/ [Concomitant]

REACTIONS (3)
  - BURNING SENSATION [None]
  - RASH ERYTHEMATOUS [None]
  - RASH PAPULAR [None]
